FAERS Safety Report 7589504-0 (Version None)
Quarter: 2011Q3

REPORT INFORMATION
  Report Type: 
  Country: None (occurrence: None)
  Receive Date: 20110705
  Receipt Date: 20110628
  Transmission Date: 20111222
  Serious: Yes (Other)
  Sender: FDA-Public Use
  Company Number: US-JNJFOC-20110505075

PATIENT
  Age: 78 Year
  Sex: Female

DRUGS (2)
  1. NUCYNTA [Suspect]
     Indication: PAIN
     Route: 048
     Dates: start: 20110120, end: 20110413
  2. NUCYNTA [Suspect]
     Indication: SPINAL COLUMN STENOSIS
     Route: 048
     Dates: start: 20110120, end: 20110413

REACTIONS (2)
  - ALOPECIA [None]
  - NAUSEA [None]
